FAERS Safety Report 18055472 (Version 1)
Quarter: 2020Q3

REPORT INFORMATION
  Report Type: Spontaneous
  Country: US (occurrence: US)
  Receive Date: 20200722
  Receipt Date: 20200722
  Transmission Date: 20201103
  Serious: Yes (Hospitalization, Disabling, Other)
  Sender: FDA-Public Use
  Company Number: US-PURDUE-USA-2020-0158108

PATIENT
  Sex: Male

DRUGS (3)
  1. TRAMADOL                           /00599202/ [Suspect]
     Active Substance: TRAMADOL
     Indication: INTENTIONAL PRODUCT MISUSE
     Route: 065
  2. OXYCONTIN [Suspect]
     Active Substance: OXYCODONE HYDROCHLORIDE
     Indication: INTENTIONAL PRODUCT MISUSE
     Route: 048
  3. HYDROCODONE BITARTRATE AND ACETAMINOPHEN [Suspect]
     Active Substance: ACETAMINOPHEN\HYDROCODONE BITARTRATE
     Indication: INTENTIONAL PRODUCT MISUSE
     Route: 048

REACTIONS (7)
  - Incorrect route of product administration [Unknown]
  - Rehabilitation therapy [Unknown]
  - Imprisonment [Unknown]
  - Hepatitis C [Unknown]
  - Brain injury [Unknown]
  - Theft [Unknown]
  - Dependence [Unknown]

NARRATIVE: CASE EVENT DATE: 1999
